FAERS Safety Report 16859505 (Version 2)
Quarter: 2019Q3

REPORT INFORMATION
  Report Type: Spontaneous
  Country: IN (occurrence: IN)
  Receive Date: 20190927
  Receipt Date: 20190927
  Transmission Date: 20191005
  Serious: Yes (Hospitalization)
  Sender: FDA-Public Use
  Company Number: IN-ALEMBIC PHARMACUETICALS LIMITED-2019SCAL000700

PATIENT

DRUGS (13)
  1. QUETIAPINE FUMARATE. [Suspect]
     Active Substance: QUETIAPINE FUMARATE
     Indication: MANIA
     Dosage: 400 MILLIGRAM
  2. CLONIDINE. [Suspect]
     Active Substance: CLONIDINE
     Indication: MANIA
     Dosage: 25 MICROGRAM
  3. CLONIDINE. [Suspect]
     Active Substance: CLONIDINE
     Dosage: 150 MICROGRAM
  4. CLONIDINE. [Suspect]
     Active Substance: CLONIDINE
     Dosage: 100 MICROGRAM
  5. SODIUM VALPROATE [Interacting]
     Active Substance: VALPROATE SODIUM
     Dosage: 1400 MILLIGRAM
  6. LITHIUM CARBONATE. [Suspect]
     Active Substance: LITHIUM CARBONATE
     Dosage: 450 MILLIGRAM
  7. CLONIDINE. [Suspect]
     Active Substance: CLONIDINE
     Dosage: 250 MICROGRAM
  8. SODIUM VALPROATE [Interacting]
     Active Substance: VALPROATE SODIUM
     Dosage: 2 GRAM (36MG/KG) OVER 3 WEEKS
  9. SODIUM VALPROATE [Interacting]
     Active Substance: VALPROATE SODIUM
     Indication: SEIZURE
     Dosage: 1 GRAM
  10. LITHIUM CARBONATE. [Suspect]
     Active Substance: LITHIUM CARBONATE
     Indication: MANIA
     Dosage: 600 MILLIGRAM
  11. CARBAMAZEPINE. [Interacting]
     Active Substance: CARBAMAZEPINE
     Indication: EPILEPSY
     Dosage: 600 MILLIGRAM, QD (10MG/KG/DAY)
  12. ARIPIPRAZOLE. [Suspect]
     Active Substance: ARIPIPRAZOLE
     Indication: MANIA
     Dosage: 10 MILLIGRAM
  13. LACOSAMIDE. [Concomitant]
     Active Substance: LACOSAMIDE
     Indication: SEIZURE
     Dosage: UNK

REACTIONS (7)
  - Drug ineffective [Unknown]
  - Polydipsia [Unknown]
  - Sleep disorder [Recovering/Resolving]
  - Mania [Recovering/Resolving]
  - Parkinsonism [Unknown]
  - Nocturia [Unknown]
  - Polyuria [Unknown]
